FAERS Safety Report 6176482-4 (Version None)
Quarter: 2009Q2

REPORT INFORMATION
  Report Type: 
  Country: None (occurrence: None)
  Receive Date: 20090501
  Receipt Date: 20090422
  Transmission Date: 20091009
  Serious: Yes (Hospitalization, Other)
  Sender: FDA-Public Use
  Company Number: PHHY2009DE07197

PATIENT
  Sex: Male

DRUGS (6)
  1. EXELON [Suspect]
     Indication: DEMENTIA
     Dosage: 9.5 MG/24H
     Route: 062
     Dates: end: 20090225
  2. EUNERPAN [Suspect]
     Indication: SEDATION
     Dosage: 10 ML, UNK
     Route: 048
     Dates: start: 20090224, end: 20090225
  3. EUNERPAN [Suspect]
     Indication: ANXIETY
  4. ZOPICLON [Concomitant]
     Indication: DEMENTIA
     Dosage: UNK
  5. RISPERDAL [Concomitant]
     Dosage: 3 ML, UNK
  6. CEPHALEXIN [Concomitant]
     Dosage: UNK

REACTIONS (6)
  - BRADYCARDIA [None]
  - CIRCULATORY COLLAPSE [None]
  - HYPOTENSION [None]
  - ORTHOSTATIC HYPOTENSION [None]
  - SKIN NEOPLASM EXCISION [None]
  - SOMNOLENCE [None]
